FAERS Safety Report 4610712-2 (Version None)
Quarter: 2005Q2

REPORT INFORMATION
  Report Type: 
  Country: None (occurrence: None)
  Receive Date: 20050228
  Receipt Date: 20040309
  Transmission Date: 20051028
  Serious: Yes (Hospitalization)
  Sender: FDA-Public Use
  Company Number: 205196

PATIENT
  Age: 16 Year
  Sex: Female
  Weight: 45.1 kg

DRUGS (1)
  1. NUTROPIN AQ [Suspect]
     Dosage: 0.3 MG/KG, 1/WEEK; SUBCUTANEOUS
     Route: 058
     Dates: start: 20010201, end: 20031001

REACTIONS (1)
  - PANCREATITIS ACUTE [None]
